FAERS Safety Report 19271351 (Version 2)
Quarter: 2021Q2

REPORT INFORMATION
  Report Type: Spontaneous
  Country: US (occurrence: US)
  Receive Date: 20210518
  Receipt Date: 20210611
  Transmission Date: 20210717
  Serious: No
  Sender: FDA-Public Use
  Company Number: US-ELI_LILLY_AND_COMPANY-US202105007165

PATIENT
  Age: 67 Year
  Sex: Female

DRUGS (6)
  1. METFORMIN ER [Concomitant]
     Active Substance: METFORMIN HYDROCHLORIDE
     Indication: TYPE 2 DIABETES MELLITUS
     Dosage: UNK U
     Route: 065
  2. HUMALOG [Suspect]
     Active Substance: INSULIN LISPRO
     Dosage: 17 U, UNKNOWN
     Route: 058
  3. HUMALOG [Suspect]
     Active Substance: INSULIN LISPRO
     Dosage: 17 U, UNKNOWN
     Route: 058
  4. ETHYLENEDIAMINE DIHYDROCHLORIDE [Suspect]
     Active Substance: ETHYLENEDIAMINE DIHYDROCHLORIDE
     Indication: PRODUCT USED FOR UNKNOWN INDICATION
     Dosage: UNK, UNKNOWN
     Route: 065
  5. LANTUS [Concomitant]
     Active Substance: INSULIN GLARGINE
     Indication: TYPE 2 DIABETES MELLITUS
  6. HUMALOG [Suspect]
     Active Substance: INSULIN LISPRO
     Indication: TYPE 2 DIABETES MELLITUS
     Dosage: UNK, UNKNOWN
     Route: 058
     Dates: start: 2007

REACTIONS (7)
  - Cataract [Recovered/Resolved]
  - Glycosylated haemoglobin abnormal [Unknown]
  - Reaction to preservatives [Unknown]
  - Visual impairment [Unknown]
  - Urticaria [Unknown]
  - Blood glucose increased [Unknown]
  - Accidental underdose [Unknown]

NARRATIVE: CASE EVENT DATE: 202012
